FAERS Safety Report 9520316 (Version 2)
Quarter: 2013Q3

REPORT INFORMATION
  Report Type: Report from Study
  Country: US (occurrence: US)
  Receive Date: 20130912
  Receipt Date: 20130913
  Transmission Date: 20140515
  Serious: Yes (Other)
  Sender: FDA-Public Use
  Company Number: US-ABBOTT-13P-163-1142730-00

PATIENT
  Age: 42 Year
  Sex: Male
  Weight: 59.93 kg

DRUGS (11)
  1. HUMIRA [Suspect]
     Indication: CROHN^S DISEASE
     Dates: start: 20130828, end: 20130828
  2. HUMIRA [Suspect]
     Indication: COLITIS ULCERATIVE
  3. IMURAN [Suspect]
     Indication: CROHN^S DISEASE
     Dates: start: 201308
  4. IMURAN [Suspect]
     Indication: COLITIS ULCERATIVE
     Dosage: DOSE INCREASED
  5. IMURAN [Suspect]
     Indication: DIARRHOEA
  6. PREDNISONE [Suspect]
     Indication: CROHN^S DISEASE
  7. FOLIC ACID [Concomitant]
     Indication: VITAMIN SUPPLEMENTATION
  8. FERROUS SULFATE [Concomitant]
     Indication: CROHN^S DISEASE
  9. CYMBALTA [Concomitant]
     Indication: DEPRESSION
  10. PROTONIX [Concomitant]
     Indication: GASTROOESOPHAGEAL REFLUX DISEASE
  11. METOPROLOL [Concomitant]
     Indication: HYPERTENSION

REACTIONS (3)
  - Osteonecrosis [Not Recovered/Not Resolved]
  - Diarrhoea [Not Recovered/Not Resolved]
  - Clostridium difficile infection [Not Recovered/Not Resolved]
